FAERS Safety Report 5523676-4 (Version None)
Quarter: 2007Q4

REPORT INFORMATION
  Report Type: 
  Country: None (occurrence: None)
  Receive Date: 20071121
  Receipt Date: 20071114
  Transmission Date: 20080405
  Serious: Yes (Hospitalization)
  Sender: FDA-Public Use
  Company Number: JP-ASTRAZENECA-2007AP06435

PATIENT
  Age: 29702 Day
  Sex: Male
  Weight: 52 kg

DRUGS (29)
  1. DIPRIVAN [Suspect]
     Indication: SEDATION
     Route: 042
     Dates: start: 20070927, end: 20070927
  2. DIPRIVAN [Suspect]
     Indication: INDUCTION OF ANAESTHESIA
     Route: 042
     Dates: start: 20070927, end: 20070927
  3. DIPRIVAN [Suspect]
     Route: 041
     Dates: start: 20070927, end: 20071002
  4. DIPRIVAN [Suspect]
     Route: 041
     Dates: start: 20070927, end: 20071002
  5. ALOSITOL [Concomitant]
     Indication: GOUT
     Route: 048
     Dates: end: 20070927
  6. LASIX [Concomitant]
     Indication: RENAL FAILURE CHRONIC
     Route: 048
     Dates: end: 20070927
  7. MUCOSTA [Concomitant]
     Indication: PEPTIC ULCER
     Route: 048
     Dates: end: 20070927
  8. PRECIPITATED CALCIUM CARBONATE [Concomitant]
     Route: 048
     Dates: end: 20070927
  9. GLYSENNID [Concomitant]
     Indication: CONSTIPATION
     Route: 048
     Dates: end: 20070927
  10. ALESION [Concomitant]
     Indication: HYPERSENSITIVITY
     Route: 048
     Dates: end: 20070927
  11. ALFAROL [Concomitant]
     Route: 048
     Dates: end: 20070927
  12. SEPAMIT [Concomitant]
     Indication: HYPERTENSION
     Route: 048
     Dates: end: 20070927
  13. MEDITRANS [Concomitant]
     Indication: HYPERTENSION
     Route: 003
     Dates: end: 20070927
  14. SEVOFLURANE [Concomitant]
     Indication: MAINTENANCE OF ANAESTHESIA
     Route: 055
     Dates: start: 20070927, end: 20070927
  15. MUSCULAX [Concomitant]
     Indication: HYPOTONIA
     Route: 042
     Dates: start: 20070927, end: 20070927
  16. ULTIVA [Concomitant]
     Indication: MAINTENANCE OF ANAESTHESIA
     Route: 042
     Dates: start: 20070927, end: 20070927
  17. FENTANYL [Concomitant]
     Indication: SEDATION
     Route: 042
     Dates: start: 20070927, end: 20070927
  18. PERDIPINE [Concomitant]
     Indication: BLOOD PRESSURE DECREASED
     Route: 042
     Dates: start: 20070927, end: 20070927
  19. ONOACT [Concomitant]
     Indication: TACHYCARDIA
     Route: 042
     Dates: start: 20070927, end: 20070927
  20. EPHEDRIN [Concomitant]
     Indication: BLOOD PRESSURE DECREASED
     Route: 042
     Dates: start: 20070927, end: 20070927
  21. PREDOPA [Concomitant]
     Indication: BLOOD PRESSURE DECREASED
     Route: 042
     Dates: start: 20070927, end: 20070927
  22. SEISHOKU [Concomitant]
     Indication: FLUID REPLACEMENT
     Route: 042
     Dates: start: 20070927, end: 20070927
  23. PREDOPA [Concomitant]
     Dosage: UNKNOWN DIVIDED DOSE FREQUENCY
     Route: 041
     Dates: start: 20070927, end: 20071001
  24. IMMUNE GLOBULIN INTRAVENOUS (HUMAN) [Concomitant]
     Indication: INFECTION PROPHYLAXIS
     Dosage: UNKNOWN DIVIDED DOSE FREQUENCY
     Route: 041
     Dates: start: 20070927, end: 20070929
  25. SOLITA-T NO.1 [Concomitant]
     Indication: FLUID REPLACEMENT
     Dosage: UNKNOWN DIVIDED DOSE FREQUENCY
     Route: 041
     Dates: start: 20070927, end: 20071001
  26. MEROPEN [Concomitant]
     Indication: INFECTION PROPHYLAXIS
     Dosage: UNKNOWN DIVIDED DOSE FREQUENCY
     Route: 041
     Dates: start: 20070927, end: 20071001
  27. GLUCOSE [Concomitant]
     Dosage: UNKNOWN DIVIDED DOSE FREQUENCY
     Route: 041
     Dates: start: 20070927, end: 20071001
  28. ELASPOL [Concomitant]
     Indication: LUNG DISORDER
     Dosage: UNKNOWN DIVIDED DOSE FREQUENCY
     Route: 041
     Dates: start: 20070927, end: 20071001
  29. OMEPRAL [Concomitant]
     Indication: PEPTIC ULCER
     Dosage: UNKNOWN DIVIDED DOSE FREQUENCY
     Route: 041
     Dates: start: 20070927, end: 20071009

REACTIONS (1)
  - DELAYED RECOVERY FROM ANAESTHESIA [None]
